FAERS Safety Report 9245208 (Version 1)
Quarter: 2013Q1

REPORT INFORMATION
  Report Type: Spontaneous
  Country: US (occurrence: None)
  Receive Date: 20121130
  Receipt Date: 20121130
  Transmission Date: 20140127
  Serious: Yes (Hospitalization, Other)
  Sender: FDA-Public Use
  Company Number: US201209006310

PATIENT
  Age: 46 Year
  Sex: Female
  Weight: 102.5 kg

DRUGS (4)
  1. BYETTA [Suspect]
     Indication: TYPE 2 DIABETES MELLITUS
     Dosage: 10 UG, BID, SUBCUTANEOUS
     Dates: start: 20120830, end: 20120913
  2. AMARYL (GLIMEPIRIDE) [Concomitant]
  3. LISINOPRIL (LISINOPRIL) [Concomitant]
  4. MULTIVITAMIN [Concomitant]

REACTIONS (8)
  - Pancreatitis [None]
  - Abdominal pain [None]
  - Abdominal pain upper [None]
  - Constipation [None]
  - Aspartate aminotransferase increased [None]
  - Alanine aminotransferase increased [None]
  - Nausea [None]
  - Weight decreased [None]
